FAERS Safety Report 19452793 (Version 1)
Quarter: 2021Q2

REPORT INFORMATION
  Report Type: Spontaneous
  Country: CA (occurrence: CA)
  Receive Date: 20210623
  Receipt Date: 20210623
  Transmission Date: 20210717
  Serious: Yes (Other)
  Sender: FDA-Public Use
  Company Number: CA-SA-2021SA200861

PATIENT
  Age: 41 Year
  Sex: Male

DRUGS (11)
  1. ATIVAN [Concomitant]
     Active Substance: LORAZEPAM
     Route: 065
  2. VITAMIN D [VITAMIN D NOS] [Concomitant]
     Active Substance: VITAMIN D NOS
     Route: 065
  3. METHYLPREDNISOLONE SODIUM SUCCINATE. [Suspect]
     Active Substance: METHYLPREDNISOLONE SODIUM SUCCINATE
     Indication: PRODUCT USED FOR UNKNOWN INDICATION
     Dosage: 1 G
     Route: 042
  4. ACICLOVIR [Concomitant]
     Active Substance: ACYCLOVIR
     Indication: PREMEDICATION
     Dosage: 220 MG
     Route: 048
  5. BACLOFEN. [Concomitant]
     Active Substance: BACLOFEN
     Route: 065
  6. DIPHENHYDRAMINE. [Concomitant]
     Active Substance: DIPHENHYDRAMINE
     Indication: PREMEDICATION
     Dosage: 50 MG FOR 5 DAYS
     Route: 048
  7. ALEMTUZUMAB [Suspect]
     Active Substance: ALEMTUZUMAB
     Indication: RELAPSING-REMITTING MULTIPLE SCLEROSIS
     Dosage: 12 MG, QD FOR 5 DAYS
     Route: 041
  8. NEURONTIN [Concomitant]
     Active Substance: GABAPENTIN
     Route: 065
  9. ACETAMINOPHEN. [Concomitant]
     Active Substance: ACETAMINOPHEN
     Indication: PREMEDICATION
     Dosage: 1 G
     Route: 048
  10. METHYLPREDNISOLONE SODIUM SUCCINATE. [Concomitant]
     Active Substance: METHYLPREDNISOLONE SODIUM SUCCINATE
     Indication: PREMEDICATION
     Dosage: 1 G FOR 3 DAYS
     Route: 042
  11. RANITIDINE. [Concomitant]
     Active Substance: RANITIDINE
     Indication: PREMEDICATION
     Dosage: 150 MG FOR 5 DAYS
     Route: 048

REACTIONS (36)
  - Mean cell haemoglobin concentration decreased [Not Recovered/Not Resolved]
  - Urine analysis abnormal [Not Recovered/Not Resolved]
  - Urinary tract infection [Not Recovered/Not Resolved]
  - Initial insomnia [Not Recovered/Not Resolved]
  - Blood thyroid stimulating hormone increased [Recovered/Resolved]
  - Blood pressure decreased [Not Recovered/Not Resolved]
  - Immature granulocyte count increased [Recovered/Resolved]
  - Urinary casts [Not Recovered/Not Resolved]
  - Fatigue [Not Recovered/Not Resolved]
  - Lymphocyte count decreased [Not Recovered/Not Resolved]
  - Protein urine [Not Recovered/Not Resolved]
  - Dysgeusia [Recovered/Resolved]
  - Urinary sediment present [Recovered/Resolved]
  - White blood cells urine [Recovered/Resolved]
  - Pruritus [Recovered/Resolved]
  - Body temperature increased [Recovered/Resolved]
  - Bradycardia [Recovered/Resolved]
  - Hypotension [Recovered/Resolved]
  - Monocyte percentage increased [Recovered/Resolved]
  - Bilirubin urine present [Recovered/Resolved]
  - Immature granulocyte percentage increased [Recovered/Resolved]
  - Mean cell volume increased [Recovered/Resolved]
  - Urine abnormality [Not Recovered/Not Resolved]
  - Erythema [Recovered/Resolved]
  - Red blood cells urine positive [Recovered/Resolved]
  - Red blood cell analysis [Recovered/Resolved]
  - Semenuria [Not Recovered/Not Resolved]
  - Urobilinogen urine [Recovered/Resolved]
  - Lymphocyte percentage decreased [Not Recovered/Not Resolved]
  - Chromaturia [Recovered/Resolved]
  - Haematocrit increased [Not Recovered/Not Resolved]
  - Laboratory test abnormal [Not Recovered/Not Resolved]
  - Crystal urine present [Not Recovered/Not Resolved]
  - Nitrite urine present [Recovered/Resolved]
  - Platelet count decreased [Recovered/Resolved]
  - Bacterial test positive [Recovered/Resolved]
